FAERS Safety Report 4379225-X (Version None)
Quarter: 2004Q2

REPORT INFORMATION
  Report Type: 
  Country: None (occurrence: None)
  Receive Date: 20040617
  Receipt Date: 20040610
  Transmission Date: 20050107
  Serious: Yes (Death)
  Sender: FDA-Public Use
  Company Number: PHBS2004IN07655

PATIENT

DRUGS (1)
  1. SIMULECT [Suspect]
     Route: 042

REACTIONS (1)
  - ARTERIAL THROMBOSIS [None]
